FAERS Safety Report 22617723 (Version 3)
Quarter: 2024Q3

REPORT INFORMATION
  Report Type: Spontaneous
  Country: US (occurrence: US)
  Receive Date: 20230620
  Receipt Date: 20240712
  Transmission Date: 20241017
  Serious: Yes (Other)
  Sender: PIERRE FABRE MEDICAMENT
  Company Number: US-MLMSERVICE-20220727-3697794-1

PATIENT
  Sex: Female

DRUGS (4)
  1. PROPRANOLOL [Suspect]
     Active Substance: PROPRANOLOL HYDROCHLORIDE
     Indication: Atrial tachycardia
     Dosage: ENTERAL PROPRANOLOL AT 1 MG/KG/DAY DIVIDED EVERY 6 HOURS WAS STARTED ON POD 11.
     Route: 065
  2. AMIODARONE [Concomitant]
     Active Substance: AMIODARONE
     Indication: Atrial tachycardia
     Dosage: 7 UG/KG, STARTED ON POD 10
     Route: 065
  3. AMIODARONE [Concomitant]
     Active Substance: AMIODARONE
     Dosage: BOLUSES
     Route: 065
  4. AMIODARONE [Concomitant]
     Active Substance: AMIODARONE
     Dosage: 3.5 UG/KG, POD 12
     Route: 065

REACTIONS (3)
  - Bradycardia neonatal [Unknown]
  - Product use in unapproved indication [Unknown]
  - Off label use [Unknown]
